FAERS Safety Report 14152164 (Version 1)
Quarter: 2017Q4

REPORT INFORMATION
  Report Type: Spontaneous
  Country: GB (occurrence: GB)
  Receive Date: 20171102
  Receipt Date: 20171102
  Transmission Date: 20180321
  Serious: Yes (Death, Hospitalization)
  Sender: FDA-Public Use
  Company Number: GB-AUROBINDO-AUR-APL-2017-42739

PATIENT
  Sex: Male

DRUGS (3)
  1. TYGACIL [Suspect]
     Active Substance: TIGECYCLINE
     Indication: ENTEROBACTER INFECTION
     Route: 065
  2. MEROPENEM. [Suspect]
     Active Substance: MEROPENEM
     Indication: ENTEROBACTER INFECTION
     Route: 042
  3. COLISTIN [Suspect]
     Active Substance: COLISTIN
     Indication: ENTEROBACTER INFECTION
     Route: 065

REACTIONS (2)
  - Death [Fatal]
  - Enterobacter infection [Fatal]
